FAERS Safety Report 8607361-8 (Version None)
Quarter: 2012Q3

REPORT INFORMATION
  Report Type: 
  Country: None (occurrence: None)
  Receive Date: 20120821
  Receipt Date: 20120815
  Transmission Date: 20120928
  Serious: No
  Sender: FDA-Public Use
  Company Number: US-PFIZER INC-2012100664

PATIENT
  Age: 47 Year
  Sex: Female
  Weight: 107 kg

DRUGS (4)
  1. LYRICA [Suspect]
     Indication: FIBROMYALGIA
     Dosage: 50 MG, 4X/DAY
     Dates: start: 20111201
  2. LYRICA [Suspect]
     Indication: NEURALGIA
     Dosage: UNK
  3. DICLOFENAC [Concomitant]
     Indication: ARTHRITIS
     Dosage: 75 MG, 2X/DAY
  4. DICLOFENAC [Concomitant]
     Indication: LYMPHOEDEMA

REACTIONS (4)
  - NERVE INJURY [None]
  - HYPOAESTHESIA [None]
  - NEURALGIA [None]
  - BURNING SENSATION [None]
